FAERS Safety Report 17606846 (Version 4)
Quarter: 2020Q2

REPORT INFORMATION
  Report Type: Spontaneous
  Country: DE (occurrence: DE)
  Receive Date: 20200331
  Receipt Date: 20200619
  Transmission Date: 20200713
  Serious: Yes (Other)
  Sender: FDA-Public Use
  Company Number: DE-NOVOPROD-720367

PATIENT
  Age: 38 Year
  Sex: Male
  Weight: 91 kg

DRUGS (1)
  1. FIASP [Suspect]
     Active Substance: INSULIN ASPART
     Indication: TYPE 1 DIABETES MELLITUS
     Dosage: ABOUT 70 IU PER DAY
     Route: 058
     Dates: start: 20200209, end: 20200226

REACTIONS (5)
  - Blood glucose increased [Recovered/Resolved with Sequelae]
  - Diabetic ketoacidosis [Recovered/Resolved with Sequelae]
  - Suspected product quality issue [Unknown]
  - Product gel formation [Unknown]
  - Device occlusion [Recovered/Resolved with Sequelae]

NARRATIVE: CASE EVENT DATE: 20200209
